FAERS Safety Report 4514160-5 (Version None)
Quarter: 2004Q4

REPORT INFORMATION
  Report Type: 
  Country: None (occurrence: None)
  Receive Date: 20041124
  Receipt Date: 20041110
  Transmission Date: 20050328
  Serious: Yes (Death, Hospitalization)
  Sender: FDA-Public Use
  Company Number: EWC041041207

PATIENT
  Age: 26 Year
  Sex: Female
  Weight: 58 kg

DRUGS (7)
  1. XIGRIS [Suspect]
     Indication: MULTI-ORGAN FAILURE
     Dosage: 24 UG/KG/HR
     Dates: start: 20041024, end: 20041025
  2. XIGRIS [Suspect]
     Indication: SEPSIS
     Dosage: 24 UG/KG/HR
     Dates: start: 20041024, end: 20041025
  3. ANTIBIOTICS [Concomitant]
  4. GLUCOSE [Concomitant]
  5. ADRENALINE [Concomitant]
  6. SEDO ANALGESIA [Concomitant]
  7. . [Concomitant]

REACTIONS (6)
  - HAEMATOCRIT DECREASED [None]
  - HAEMOGLOBIN DECREASED [None]
  - LIVER DISORDER [None]
  - PLATELET COUNT DECREASED [None]
  - SHOCK [None]
  - VIRAL INFECTION [None]
